FAERS Safety Report 26138751 (Version 1)
Quarter: 2025Q4

REPORT INFORMATION
  Report Type: Spontaneous
  Country: US (occurrence: US)
  Receive Date: 20251210
  Receipt Date: 20251210
  Transmission Date: 20260117
  Serious: No
  Sender: AUROBINDO
  Company Number: US-AUROBINDO-AUR-APL-2025-003232

PATIENT
  Age: 11 Year
  Sex: Male

DRUGS (9)
  1. CITALOPRAM [Suspect]
     Active Substance: CITALOPRAM
     Indication: Attention deficit hyperactivity disorder
     Dosage: UNK
     Route: 065
  2. CITALOPRAM [Suspect]
     Active Substance: CITALOPRAM
     Indication: Oppositional defiant disorder
  3. CITALOPRAM [Suspect]
     Active Substance: CITALOPRAM
     Indication: Autism spectrum disorder
  4. CITALOPRAM [Suspect]
     Active Substance: CITALOPRAM
     Indication: Behaviour disorder
  5. GUANFACINE [Suspect]
     Active Substance: GUANFACINE
     Indication: Attention deficit hyperactivity disorder
     Dosage: UNK
     Route: 065
  6. GUANFACINE [Suspect]
     Active Substance: GUANFACINE
     Indication: Oppositional defiant disorder
  7. GUANFACINE [Suspect]
     Active Substance: GUANFACINE
     Indication: Behaviour disorder
  8. GUANFACINE [Suspect]
     Active Substance: GUANFACINE
     Indication: Autism spectrum disorder
  9. QUILLIVANT XR [Suspect]
     Active Substance: METHYLPHENIDATE HYDROCHLORIDE
     Indication: Attention deficit hyperactivity disorder
     Dosage: 5 MILLILITER, EVERY MORNING

REACTIONS (2)
  - Anxiety [Not Recovered/Not Resolved]
  - Gastroenteritis viral [Unknown]

NARRATIVE: CASE EVENT DATE: 20240101
